FAERS Safety Report 12335093 (Version 1)
Quarter: 2016Q2

REPORT INFORMATION
  Report Type: Spontaneous
  Country: FI (occurrence: FI)
  Receive Date: 20160504
  Receipt Date: 20160504
  Transmission Date: 20160815
  Serious: Yes (Hospitalization, Other)
  Sender: FDA-Public Use
  Company Number: FI-MYLANLABS-2016M1017753

PATIENT

DRUGS (6)
  1. TICAGRELOR [Suspect]
     Active Substance: TICAGRELOR
     Indication: MYOCARDIAL INFARCTION
     Dosage: 90 MG, BID
     Route: 065
  2. CANDESARTAN [Suspect]
     Active Substance: CANDESARTAN
     Indication: PRODUCT USED FOR UNKNOWN INDICATION
  3. PANTOPRAZOLE MYLAN [Suspect]
     Active Substance: PANTOPRAZOLE SODIUM
     Indication: PRODUCT USED FOR UNKNOWN INDICATION
     Dosage: UNK
  4. ENOXAPARINE SODIQUE [Suspect]
     Active Substance: ENOXAPARIN SODIUM
     Indication: PRODUCT USED FOR UNKNOWN INDICATION
     Dosage: 50 MG, BID
     Route: 065
  5. ATORVASTATIN [Suspect]
     Active Substance: ATORVASTATIN
     Indication: PRODUCT USED FOR UNKNOWN INDICATION
  6. ACETYLSALICYLIC ACID [Suspect]
     Active Substance: ASPIRIN
     Indication: MYOCARDIAL INFARCTION
     Dosage: 100 MG, QD
     Route: 065

REACTIONS (21)
  - Intestinal ischaemia [Unknown]
  - Chest pain [Unknown]
  - Dyspnoea [Unknown]
  - Pleural fluid analysis [Unknown]
  - Sinusitis [Unknown]
  - Blood thyroid stimulating hormone increased [Unknown]
  - Intestinal haemorrhage [Unknown]
  - Mesenteric artery thrombosis [Unknown]
  - Faeces discoloured [Unknown]
  - Diarrhoea [Unknown]
  - Cardiac failure [Unknown]
  - Pneumonia [Unknown]
  - Abdominal pain upper [Unknown]
  - Renal infarct [Unknown]
  - C-reactive protein increased [Unknown]
  - Vomiting [Unknown]
  - Haematochezia [Unknown]
  - Pyrexia [Unknown]
  - Embolism [Unknown]
  - Atrial fibrillation [Unknown]
  - Ileus paralytic [Unknown]
